FAERS Safety Report 6732954-2 (Version None)
Quarter: 2010Q2

REPORT INFORMATION
  Report Type: 
  Country: None (occurrence: None)
  Receive Date: 20100517
  Receipt Date: 20100506
  Transmission Date: 20101027
  Serious: Yes (Death, Hospitalization)
  Sender: FDA-Public Use
  Company Number: 99596

PATIENT
  Age: 58 Year
  Sex: Male

DRUGS (1)
  1. DILTIAZEM HCL        INJ. 25MG/5ML [Suspect]
     Dosage: 7.2G

REACTIONS (8)
  - ABDOMINAL DISTENSION [None]
  - BRADYCARDIA [None]
  - CARDIAC ARREST [None]
  - HYPOPERFUSION [None]
  - HYPOTENSION [None]
  - INTENTIONAL OVERDOSE [None]
  - PULMONARY OEDEMA [None]
  - SUICIDE ATTEMPT [None]
